FAERS Safety Report 23226932 (Version 1)
Quarter: 2023Q4

REPORT INFORMATION
  Report Type: Report from Study
  Country: GB (occurrence: GB)
  Receive Date: 20231124
  Receipt Date: 20231124
  Transmission Date: 20240110
  Serious: Yes (Other)
  Sender: FDA-Public Use
  Company Number: GB-002147023-NVSC2023GB246481

PATIENT
  Age: 38 Year
  Sex: Male

DRUGS (1)
  1. INCLISIRAN [Suspect]
     Active Substance: INCLISIRAN
     Indication: Low density lipoprotein increased
     Dosage: 6 MONTHLY MAINTENANCE
     Route: 058
     Dates: start: 202204

REACTIONS (6)
  - Neoplasm malignant [Unknown]
  - Lipoma [Unknown]
  - Viral infection [Unknown]
  - Anxiety [Unknown]
  - Stress [Unknown]
  - Mesenteric lymphadenitis [Unknown]

NARRATIVE: CASE EVENT DATE: 20231114
